FAERS Safety Report 12160250 (Version 1)
Quarter: 2016Q1

REPORT INFORMATION
  Report Type: Spontaneous
  Country: US (occurrence: US)
  Receive Date: 20160308
  Receipt Date: 20160308
  Transmission Date: 20160526
  Serious: No
  Sender: FDA-Public Use
  Company Number: US-AMNEAL PHARMACEUTICALS-2016AMN00098

PATIENT
  Age: 41 Year
  Sex: Female
  Weight: 99.77 kg

DRUGS (4)
  1. HYDROCODONE BITARTRATE AND ACETAMINOPHEN [Concomitant]
     Active Substance: ACETAMINOPHEN\HYDROCODONE BITARTRATE
     Indication: PAIN
     Dosage: 1 TABLETS, AS NEEDED
  2. METHOCARBAMOL. [Concomitant]
     Active Substance: METHOCARBAMOL
     Dosage: UNK MG, UP TO 4X/DAY
     Route: 048
  3. PRENATAL PLUS VITAMIN [Concomitant]
     Dosage: 1 TABLETS, 1X/DAY
     Dates: start: 2014
  4. SULFAMETHOXAZOLE AND TRIMETHOPRIM [Suspect]
     Active Substance: SULFAMETHOXAZOLE\TRIMETHOPRIM
     Indication: ABSCESS
     Dosage: 1 TABLETS, 2X/DAY
     Route: 048
     Dates: start: 20150115, end: 20150115

REACTIONS (3)
  - Joint range of motion decreased [Recovering/Resolving]
  - Arthralgia [Recovered/Resolved]
  - Pain in extremity [Recovering/Resolving]

NARRATIVE: CASE EVENT DATE: 20150115
